FAERS Safety Report 4365775-9 (Version None)
Quarter: 2004Q2

REPORT INFORMATION
  Report Type: 
  Country: None (occurrence: None)
  Receive Date: 20040521
  Receipt Date: 20420513
  Transmission Date: 20050107
  Serious: Yes (Other)
  Sender: FDA-Public Use
  Company Number: 2004213292PT

PATIENT
  Sex: Female

DRUGS (2)
  1. CELEBREX [Suspect]
     Dosage: 200 MG, ORAL
     Route: 048
     Dates: start: 20040201, end: 20040201
  2. PANKREOFLAT (PROTEASE, LIPASE, DIASTASE) [Concomitant]

REACTIONS (1)
  - ERYTHEMA NODOSUM [None]
